FAERS Safety Report 4780556-X (Version None)
Quarter: 2005Q3

REPORT INFORMATION
  Report Type: 
  Country: None (occurrence: None)
  Receive Date: 20050914
  Receipt Date: 20050427
  Transmission Date: 20060218
  Serious: Yes (Hospitalization)
  Sender: FDA-Public Use
  Company Number: 163-20785-05040564

PATIENT
  Age: 45 Year
  Sex: Female
  Weight: 88 kg

DRUGS (7)
  1. THALOMID [Suspect]
     Indication: MULTIPLE MYELOMA
     Dosage: 200 MG, DAILY, ORAL
     Route: 048
     Dates: start: 20050319, end: 20050322
  2. VELCADE [Suspect]
     Indication: MULTIPLE MYELOMA
     Dosage: 2 MG, DAILY ON DAYS 1, 4, 8, 11, INTRAVENOUS
     Route: 042
     Dates: start: 20050316, end: 20050326
  3. DEXAMETHASONE [Suspect]
     Indication: MULTIPLE MYELOMA
     Dosage: 40 MG, DAILY, ORAL
     Route: 048
     Dates: start: 20050319, end: 20050322
  4. CISPLATIN [Suspect]
     Indication: MULTIPLE MYELOMA
     Dosage: 20 MG, DAILY, INTRAVENOUS
     Route: 042
     Dates: start: 20050319, end: 20050321
  5. ADRIAMYCIN PFS [Suspect]
     Indication: MULTIPLE MYELOMA
     Dosage: 20 MG, DAILY, INTRAVENOUS
     Route: 042
     Dates: start: 20040319, end: 20050322
  6. CYCLOPHOSPHAMIDE [Suspect]
     Indication: MULTIPLE MYELOMA
     Dosage: 800 MG, DAILY, INTRAVENOUS
     Route: 042
     Dates: start: 20050319, end: 20050322
  7. ETOPOSIDE [Suspect]
     Indication: MULTIPLE MYELOMA
     Dosage: 80 MG, DAILY, INTRAVENOUS
     Route: 042
     Dates: start: 20050319, end: 20050322

REACTIONS (12)
  - ACINETOBACTER INFECTION [None]
  - ASTHENIA [None]
  - BACTERAEMIA [None]
  - BLOOD CREATININE INCREASED [None]
  - CHILLS [None]
  - CLOSTRIDIAL INFECTION [None]
  - COUGH [None]
  - DIARRHOEA [None]
  - PYREXIA [None]
  - RENAL TUBULAR NECROSIS [None]
  - RHINORRHOEA [None]
  - SEPSIS [None]
